FAERS Safety Report 14947939 (Version 10)
Quarter: 2023Q1

REPORT INFORMATION
  Report Type: Report from Study
  Country: BE (occurrence: BE)
  Receive Date: 20180529
  Receipt Date: 20230327
  Transmission Date: 20230418
  Serious: Yes (Other)
  Sender: FDA-Public Use
  Company Number: PHHY2018BE010084

PATIENT
  Age: 29 Year
  Sex: Male

DRUGS (2)
  1. COSENTYX [Suspect]
     Active Substance: SECUKINUMAB
     Indication: Psoriasis
     Dosage: 300 MG, UNKNOWN
     Route: 065
     Dates: start: 20170531, end: 20170627
  2. COSENTYX [Suspect]
     Active Substance: SECUKINUMAB
     Dosage: 300 MG, UNKNOWN
     Route: 065
     Dates: start: 20170628

REACTIONS (7)
  - Pneumonia [Recovered/Resolved]
  - Nasopharyngitis [Recovered/Resolved]
  - Overweight [Recovered/Resolved]
  - Low density lipoprotein increased [Unknown]
  - Blood cholesterol increased [Unknown]
  - Tension headache [Recovering/Resolving]
  - Psoriasis [Not Recovered/Not Resolved]

NARRATIVE: CASE EVENT DATE: 20180205
